FAERS Safety Report 6294172-4 (Version None)
Quarter: 2009Q3

REPORT INFORMATION
  Report Type: 
  Country: None (occurrence: None)
  Receive Date: 20090803
  Receipt Date: 20090128
  Transmission Date: 20100115
  Serious: No
  Sender: FDA-Public Use
  Company Number: A0765639A

PATIENT
  Age: 39 Year
  Sex: Male

DRUGS (1)
  1. NICORETTE (MINT) [Suspect]
     Dates: start: 20090119, end: 20090124

REACTIONS (5)
  - GINGIVAL BLEEDING [None]
  - GINGIVAL PRURITUS [None]
  - GINGIVITIS [None]
  - HYPERSENSITIVITY [None]
  - OEDEMA MOUTH [None]
